FAERS Safety Report 8078211-6 (Version None)
Quarter: 2012Q1

REPORT INFORMATION
  Report Type: 
  Country: None (occurrence: None)
  Receive Date: 20120127
  Receipt Date: 20110125
  Transmission Date: 20120608
  Serious: No
  Sender: FDA-Public Use
  Company Number: US-ABBOTT-10P-163-0692668-00

PATIENT
  Sex: Male
  Weight: 88.53 kg

DRUGS (22)
  1. ALBUTEROL [Concomitant]
     Indication: HYPERSENSITIVITY
     Dosage: PRN
  2. ATARAX [Concomitant]
     Indication: PALATAL OEDEMA
     Dosage: PRN
  3. PROTONIX [Concomitant]
     Indication: GASTROOESOPHAGEAL REFLUX DISEASE
     Dosage: DAILY
  4. ADVAIR DISKUS 100/50 [Concomitant]
     Indication: HYPERSENSITIVITY
     Dosage: PRN
  5. METHOTREXATE [Concomitant]
     Indication: PRODUCT USED FOR UNKNOWN INDICATION
  6. HUMIRA [Suspect]
     Indication: PSORIATIC ARTHROPATHY
     Dosage: 1 EVERY 2 WEEKS, INTERRUPTED
     Route: 058
     Dates: start: 20091013, end: 20100830
  7. ALAMIDE [Concomitant]
     Indication: MULTIPLE ALLERGIES
  8. FLONASE [Concomitant]
     Indication: HYPERSENSITIVITY
     Dosage: NASAL SPRAY PRN
  9. COLCHICINE [Concomitant]
     Indication: GOUT
     Dosage: 2 TABLETS DAILY
  10. PLAQUENIL [Concomitant]
     Indication: ARTHRITIS
  11. PREDNISONE [Concomitant]
     Indication: PRODUCT USED FOR UNKNOWN INDICATION
  12. ACETAMINOPHEN [Concomitant]
     Indication: PRODUCT USED FOR UNKNOWN INDICATION
     Dosage: PRN
  13. ALAMIDE [Concomitant]
     Indication: SWELLING
     Dosage: PRN
     Route: 047
  14. VICODIN [Concomitant]
     Indication: PAIN
  15. ALLOPURINOL [Concomitant]
     Indication: GOUT
  16. DYAZIDE [Concomitant]
     Indication: HYPERTENSION
     Dosage: 1-35.5/25MG DAILY
  17. HUMIRA [Suspect]
     Route: 058
     Dates: start: 20101221
  18. ALLEGRA [Concomitant]
     Indication: HYPERSENSITIVITY
     Dosage: DAILY
  19. ATARAX [Concomitant]
     Indication: MULTIPLE ALLERGIES
  20. COLCHICINE [Concomitant]
     Indication: CHONDROCALCINOSIS PYROPHOSPHATE
  21. FOLIC ACID [Concomitant]
     Indication: PRODUCT USED FOR UNKNOWN INDICATION
  22. LIDOCAINE [Concomitant]
     Indication: PAIN
     Dosage: PATCH PRN

REACTIONS (22)
  - OROPHARYNGEAL CANDIDIASIS [None]
  - ASTHENIA [None]
  - TACHYCARDIA [None]
  - PSORIATIC ARTHROPATHY [None]
  - JOINT SWELLING [None]
  - RASH PAPULOSQUAMOUS [None]
  - ARTHRITIS [None]
  - THROMBOCYTOSIS [None]
  - COUGH [None]
  - LYMPHADENOPATHY [None]
  - JOINT WARMTH [None]
  - INFLUENZA LIKE ILLNESS [None]
  - HYPERHIDROSIS [None]
  - FATIGUE [None]
  - DECREASED APPETITE [None]
  - CHILLS [None]
  - TEMPERATURE INTOLERANCE [None]
  - WEIGHT DECREASED [None]
  - OESOPHAGEAL CANDIDIASIS [None]
  - NIGHT SWEATS [None]
  - BREATH SOUNDS ABNORMAL [None]
  - ARTHRALGIA [None]
